FAERS Safety Report 12967422 (Version 1)
Quarter: 2016Q4

REPORT INFORMATION
  Report Type: Spontaneous
  Country: US (occurrence: US)
  Receive Date: 20161123
  Receipt Date: 20161123
  Transmission Date: 20170207
  Serious: Yes (Hospitalization, Other)
  Sender: FDA-Public Use
  Company Number: US-SUN PHARMACEUTICAL INDUSTRIES LTD-2016US-109580

PATIENT
  Age: 24 Year
  Sex: Female

DRUGS (1)
  1. VALACICLOVIR [Suspect]
     Active Substance: VALACYCLOVIR HYDROCHLORIDE
     Indication: GENITAL HERPES
     Dosage: 1000 MG, BID X 3 DAYS
     Route: 065

REACTIONS (12)
  - Coordination abnormal [Recovering/Resolving]
  - Neurotoxicity [Unknown]
  - Leukoencephalopathy [Unknown]
  - Tremor [Recovering/Resolving]
  - Ataxia [Recovering/Resolving]
  - Confusional state [Recovering/Resolving]
  - Status epilepticus [Recovered/Resolved]
  - Renal failure [Unknown]
  - Clumsiness [Recovering/Resolving]
  - Hypertension [Recovering/Resolving]
  - Hallucination [Recovering/Resolving]
  - Accidental overdose [Unknown]
